FAERS Safety Report 4610270-2 (Version None)
Quarter: 2005Q1

REPORT INFORMATION
  Report Type: 
  Country: None (occurrence: None)
  Receive Date: 20050310
  Receipt Date: 20050225
  Transmission Date: 20050727
  Serious: Yes (Other)
  Sender: FDA-Public Use
  Company Number: 2250051-2005-00077

PATIENT
  Age: 31 Year
  Sex: Female

DRUGS (2)
  1. RHOGAM [Suspect]
     Indication: PRENATAL CARE
     Dosage: 300UG IM
     Route: 030
     Dates: start: 19980128
  2. RHOGAM [Suspect]
     Dosage: 300UG IM
     Route: 030
     Dates: start: 19980322

REACTIONS (1)
  - AUTISM [None]
